FAERS Safety Report 6559137-3 (Version None)
Quarter: 2010Q1

REPORT INFORMATION
  Report Type: 
  Country: None (occurrence: None)
  Receive Date: 20100129
  Receipt Date: 20100120
  Transmission Date: 20100710
  Serious: Yes (Other)
  Sender: FDA-Public Use
  Company Number: PHHY2010JP03937

PATIENT

DRUGS (1)
  1. NEORAL [Suspect]
     Indication: APLASTIC ANAEMIA
     Route: 048

REACTIONS (2)
  - BLOOD LACTATE DEHYDROGENASE INCREASED [None]
  - LIVER FUNCTION TEST ABNORMAL [None]
